FAERS Safety Report 6898754-8 (Version None)
Quarter: 2010Q3

REPORT INFORMATION
  Report Type: 
  Country: None (occurrence: None)
  Receive Date: 20100802
  Receipt Date: 20071201
  Transmission Date: 20110219
  Serious: No
  Sender: FDA-Public Use
  Company Number: US-PFIZER INC-2007101565

PATIENT
  Age: 55 Year
  Weight: 53.98 kg

DRUGS (1)
  1. LYRICA [Suspect]

REACTIONS (3)
  - HYPOAESTHESIA [None]
  - OEDEMA [None]
  - PARAESTHESIA [None]
